FAERS Safety Report 9841480 (Version 1)
Quarter: 2014Q1

REPORT INFORMATION
  Report Type: Spontaneous
  Country: DE (occurrence: DE)
  Receive Date: 20140124
  Receipt Date: 20140124
  Transmission Date: 20141002
  Serious: Yes (Hospitalization)
  Sender: FDA-Public Use
  Company Number: PHHY2014DE007689

PATIENT
  Sex: Female

DRUGS (1)
  1. TRILEPTAL [Suspect]
     Dosage: 300 MG, BID
     Route: 048
     Dates: start: 201310

REACTIONS (9)
  - Cerebrovascular accident [Unknown]
  - Vocal cord paralysis [Unknown]
  - Oxygen consumption decreased [Unknown]
  - Dyspnoea [Unknown]
  - Bone pain [Unknown]
  - Blood calcium decreased [Unknown]
  - Hypertension [Unknown]
  - Vomiting [Unknown]
  - Drug intolerance [Unknown]
